FAERS Safety Report 7148437-4 (Version None)
Quarter: 2010Q4

REPORT INFORMATION
  Report Type: 
  Country: None (occurrence: None)
  Receive Date: 20101126
  Receipt Date: 20101116
  Transmission Date: 20110411
  Serious: Yes (Hospitalization)
  Sender: FDA-Public Use
  Company Number: LEO-2010-01026

PATIENT
  Age: 51 Year
  Sex: Male

DRUGS (4)
  1. INNOHEP [Suspect]
     Indication: DEEP VEIN THROMBOSIS
     Dosage: 18000 IU (18000 IU,1 IN 1 D),SUBCUTANEOUS
     Route: 058
     Dates: start: 20101001, end: 20101008
  2. PRETERAX(INDAPAMIDE, PERINDOPRIL ERBUMINE) (2 MILLIGRAM, TABLETS) [Suspect]
     Indication: HYPERTENSION
     Dosage: 2 MG/0.625 MG
     Dates: start: 20101002, end: 20101007
  3. COUMADINE (WARFAIRN SODIUM) [Concomitant]
  4. CRESTOR [Concomitant]

REACTIONS (1)
  - CYTOLYTIC HEPATITIS [None]
